FAERS Safety Report 9258356 (Version 1)
Quarter: 2013Q2

REPORT INFORMATION
  Report Type: Spontaneous
  Country: ES (occurrence: ES)
  Receive Date: 20130426
  Receipt Date: 20130426
  Transmission Date: 20140414
  Serious: Yes (Other)
  Sender: FDA-Public Use
  Company Number: ES-ELI_LILLY_AND_COMPANY-ES201304006523

PATIENT
  Age: 52 Year
  Sex: Male

DRUGS (1)
  1. ZYPREXA VELOTAB [Suspect]
     Indication: PSYCHOTIC DISORDER
     Dosage: 15 MG, QD
     Dates: start: 20130206, end: 20130211

REACTIONS (1)
  - Confusional state [Recovered/Resolved]
